FAERS Safety Report 8641772 (Version 3)
Quarter: 2012Q4

REPORT INFORMATION
  Report Type: 
  Country: US (occurrence: US)
  Receive Date: 20120628
  Receipt Date: 20121017
  Transmission Date: 20130627
  Serious: Yes (Hospitalization, Disabling, Other)
  Sender: FDA-Public Use
  Company Number: US-MERCK-1201USA02551

PATIENT

DRUGS (13)
  1. FOSAMAX [Suspect]
     Dosage: 70 mg, QW
     Route: 048
     Dates: start: 2000
  2. FOSAMAX [Suspect]
     Indication: OSTEOPOROSIS
     Dosage: 70 mg, UNK
     Route: 048
     Dates: start: 20080407, end: 200905
  3. FOSAMAX [Suspect]
     Indication: OSTEOPOROSIS
     Dosage: 70 mg, UNK
     Route: 048
     Dates: start: 20080930
  4. CALCIUM (UNSPECIFIED) [Concomitant]
     Indication: OSTEOPOROSIS
     Dosage: 600 mg, qd
  5. VITAMIN D (UNSPECIFIED) [Concomitant]
     Indication: OSTEOPOROSIS
     Dosage: 200-600
     Route: 048
  6. CHOLESTEROL [Concomitant]
     Indication: BLOOD CHOLESTEROL INCREASED
     Dates: start: 1997
  7. ATIVAN [Concomitant]
     Indication: PANIC ATTACK
     Dosage: 0.5 mg, PRN
     Route: 048
  8. PAXIL [Concomitant]
     Indication: PANIC ATTACK
     Dosage: 10-40
     Route: 048
     Dates: start: 19970103
  9. SYNTHROID [Concomitant]
     Indication: HYPOTHYROIDISM
     Dosage: 112 Microgram, qd
     Dates: start: 1995
  10. SPIRIVA [Concomitant]
     Indication: CHRONIC OBSTRUCTIVE PULMONARY DISEASE
     Dosage: 18 ?g, qd
     Route: 055
     Dates: start: 200802
  11. ADVAIR [Concomitant]
     Indication: CHRONIC OBSTRUCTIVE PULMONARY DISEASE
     Dosage: 250-50
     Route: 055
     Dates: start: 200802
  12. ALBUTEROL [Concomitant]
     Indication: CHRONIC OBSTRUCTIVE PULMONARY DISEASE
     Dosage: UNK UNK, PRN
     Route: 055
  13. FOSAMAX [Suspect]
     Indication: OSTEOPOROSIS
     Dosage: 10 mg, qd
     Route: 048
     Dates: start: 199804

REACTIONS (79)
  - Ectopic kidney [Unknown]
  - Osteonecrosis of jaw [Not Recovered/Not Resolved]
  - Tooth infection [Unknown]
  - Dental prosthesis user [Unknown]
  - Oral infection [Unknown]
  - Gingivitis [Unknown]
  - Hypertension [Unknown]
  - Head injury [Unknown]
  - Periodontitis [Not Recovered/Not Resolved]
  - Gingival bleeding [Unknown]
  - Oral disorder [Unknown]
  - Coccydynia [Unknown]
  - Rectocele [Unknown]
  - Adjustment disorder [Unknown]
  - Insomnia [Unknown]
  - Contusion [Unknown]
  - Laceration [Unknown]
  - Excoriation [Unknown]
  - Rib fracture [Unknown]
  - Chest pain [Unknown]
  - Seborrhoeic keratosis [Unknown]
  - Vertigo positional [Unknown]
  - Post concussion syndrome [Unknown]
  - Change of bowel habit [Unknown]
  - Rectal adenoma [Unknown]
  - Lipoma [Unknown]
  - Fibrocystic breast disease [Unknown]
  - Rectal polyp [Unknown]
  - Weight increased [Unknown]
  - Diverticulum intestinal [Unknown]
  - Neuropathy peripheral [Unknown]
  - Muscular weakness [Unknown]
  - Family stress [Unknown]
  - Tinnitus [Unknown]
  - Autoimmune thyroiditis [Unknown]
  - Osteoarthritis [Unknown]
  - Cataract [Unknown]
  - Spinal compression fracture [Unknown]
  - Blister [Unknown]
  - Skin papilloma [Unknown]
  - Anxiety [Unknown]
  - Arrhythmia [Unknown]
  - Poor dental condition [Unknown]
  - Tooth disorder [Unknown]
  - Dental caries [Unknown]
  - Tooth fracture [Unknown]
  - Laceration [Unknown]
  - Emphysema [Unknown]
  - Coronary artery disease [Unknown]
  - Asthma [Unknown]
  - Carotid artery aneurysm [Unknown]
  - Fall [Unknown]
  - Contusion [Unknown]
  - Depression [Unknown]
  - Acne [Unknown]
  - Pain [Unknown]
  - Dizziness postural [Unknown]
  - Temporomandibular joint syndrome [Unknown]
  - Malocclusion [Unknown]
  - Bone lesion [Unknown]
  - Tooth erosion [Unknown]
  - Tooth loss [Unknown]
  - Device breakage [Unknown]
  - Tooth extraction [Unknown]
  - Dyspnoea [Unknown]
  - Fatigue [Unknown]
  - Gingivitis [Unknown]
  - Somnolence [Unknown]
  - Poor quality sleep [Unknown]
  - Gingival infection [Unknown]
  - Herpes zoster [Unknown]
  - Skin lesion [Unknown]
  - Bronchitis [Recovering/Resolving]
  - Dyspepsia [Unknown]
  - Constipation [Unknown]
  - Rash macular [Unknown]
  - Dizziness [Unknown]
  - Gingival ulceration [Unknown]
  - Back pain [Unknown]
